FAERS Safety Report 8394016-0 (Version None)
Quarter: 2012Q2

REPORT INFORMATION
  Report Type: 
  Country: None (occurrence: None)
  Receive Date: 20120523
  Receipt Date: 20120511
  Transmission Date: 20120825
  Serious: Yes (Disabling)
  Sender: FDA-Public Use
  Company Number: 2012SP019488

PATIENT
  Age: 60 Year
  Sex: Male

DRUGS (4)
  1. VICTRELIS [Suspect]
     Indication: HEPATITIS C
     Dosage: 800 MG; TID; PO
     Route: 048
     Dates: start: 20120328, end: 20120430
  2. PEGASYS [Suspect]
     Indication: HEPATITIS C
  3. RIBAVIRIN [Suspect]
     Indication: HEPATITIS C
  4. NADOLOL [Concomitant]

REACTIONS (12)
  - FATIGUE [None]
  - INSOMNIA [None]
  - NAUSEA [None]
  - LISTLESS [None]
  - SUBRETINAL HAEMATOMA [None]
  - ANAEMIA [None]
  - DIZZINESS [None]
  - RASH [None]
  - GASTROINTESTINAL DISORDER [None]
  - VISION BLURRED [None]
  - SYNCOPE [None]
  - ABDOMINAL DISCOMFORT [None]
